FAERS Safety Report 8252803-3 (Version None)
Quarter: 2012Q2

REPORT INFORMATION
  Report Type: 
  Country: None (occurrence: None)
  Receive Date: 20120402
  Receipt Date: 20111221
  Transmission Date: 20120825
  Serious: No
  Sender: FDA-Public Use
  Company Number: US-ABBOTT-11P-163-0886491-00

PATIENT
  Sex: Male
  Weight: 113.5 kg

DRUGS (3)
  1. PROPRANOLOL [Concomitant]
     Indication: HYPERTENSION
     Route: 048
  2. LIPITOR [Concomitant]
     Indication: BLOOD CHOLESTEROL INCREASED
     Route: 048
  3. ANDROGEL [Suspect]
     Indication: BLOOD TESTOSTERONE DECREASED
     Dosage: 2 PUMPS DAILY
     Route: 061
     Dates: start: 20111203

REACTIONS (4)
  - POLLAKIURIA [None]
  - DISTURBANCE IN SEXUAL AROUSAL [None]
  - ANURIA [None]
  - MICTURITION URGENCY [None]
